FAERS Safety Report 10763515 (Version 3)
Quarter: 2015Q1

REPORT INFORMATION
  Report Type: Report from Study
  Country: US (occurrence: US)
  Receive Date: 20150204
  Receipt Date: 20150227
  Transmission Date: 20150721
  Serious: No
  Sender: FDA-Public Use
  Company Number: US-GILEAD-2015-0135351

PATIENT
  Age: 68 Year
  Sex: Female

DRUGS (4)
  1. VENTAVIS [Suspect]
     Active Substance: ILOPROST
     Indication: PRODUCT USED FOR UNKNOWN INDICATION
     Dosage: 5.0 UNK, UNK
     Route: 065
  2. AMBRISENTAN [Suspect]
     Active Substance: AMBRISENTAN
     Indication: PRODUCT USED FOR UNKNOWN INDICATION
     Dosage: 10 MG, QD
     Route: 065
     Dates: start: 20141220
  3. VENTAVIS [Suspect]
     Active Substance: ILOPROST
     Dosage: 2.5 UNK, UNK
     Route: 065
  4. ADCIRCA [Concomitant]
     Active Substance: TADALAFIL

REACTIONS (9)
  - Swelling [Unknown]
  - Abdominal distension [Not Recovered/Not Resolved]
  - Migraine [Recovered/Resolved]
  - Dyspnoea [Unknown]
  - Headache [Unknown]
  - Pain in extremity [Unknown]
  - Fluid retention [Unknown]
  - Oedema [Unknown]
  - Oedema peripheral [Not Recovered/Not Resolved]
